FAERS Safety Report 5672010-8 (Version None)
Quarter: 2008Q2

REPORT INFORMATION
  Report Type: 
  Country: None (occurrence: None)
  Receive Date: 20080219
  Receipt Date: 20071113
  Transmission Date: 20081010
  Serious: No
  Sender: FDA-Public Use
  Company Number: TPA2007A02341

PATIENT
  Age: 81 Year
  Sex: Female
  Weight: 61.2356 kg

DRUGS (14)
  1. ROZEREM [Suspect]
     Indication: INSOMNIA
     Dosage: 8 MG, HS, PER ORAL
     Route: 048
     Dates: start: 20071030, end: 20070101
  2. ZETIA [Concomitant]
  3. COREG [Concomitant]
  4. GLUCOSAMINE (GLUCOSAMINE) [Concomitant]
  5. GLUCOPHAGE [Concomitant]
  6. DIOVAN [Concomitant]
  7. VITAMIN B (VITAMIN B) [Concomitant]
  8. VITAMIN C COMPLEX (ASCORBIC ACID) [Concomitant]
  9. ZINC (ZINC0 [Concomitant]
  10. CALCIUM WITH D (ERGOCALCIFEROL, CALCIUM PHOSPHATE, CALCIUM SODIUM LACT [Concomitant]
  11. VITAMIN B6 [Concomitant]
  12. LEVOXYL [Concomitant]
  13. IBUPROFEN [Concomitant]
  14. TYLENOL ARTHRITIS (PARACETAMOL) [Concomitant]

REACTIONS (1)
  - INITIAL INSOMNIA [None]
